FAERS Safety Report 8121356 (Version 6)
Quarter: 2013Q1

REPORT INFORMATION
  Report Type: Spontaneous
  Country: US (occurrence: US)
  Receive Date: 20110906
  Receipt Date: 20130321
  Transmission Date: 20140127
  Serious: Yes (Hospitalization, Disabling, Other)
  Sender: FDA-Public Use
  Company Number: US-ELI_LILLY_AND_COMPANY-US201108008073

PATIENT
  Age: 60 Year
  Sex: Female

DRUGS (26)
  1. FORTEO [Suspect]
     Indication: OSTEOPOROSIS
     Dosage: 20 UG, QD
     Route: 065
     Dates: start: 20110630, end: 201212
  2. FORTEO [Suspect]
     Dosage: 20 UG, QD
     Dates: end: 201212
  3. EVISTA [Suspect]
     Indication: OSTEOPOROSIS
     Dosage: 60 MG, QD
     Dates: start: 201104
  4. CYMBALTA [Suspect]
     Indication: DEPRESSION
     Dosage: 60 MG, QD
  5. AMLODIPINE BESYLATE [Concomitant]
     Dosage: 10 MG, UNK
  6. ASPIRIN [Concomitant]
     Dosage: 81 MG, UNK
  7. BUPROPION HCL [Concomitant]
     Dosage: 150 MG, UNK
  8. DIOVAN [Concomitant]
  9. FAMOTIDINE [Concomitant]
  10. FERROUS SULFATE [Concomitant]
  11. FLUTICASONE PROPIONATE [Concomitant]
     Route: 045
  12. ALBUTEROL [Concomitant]
  13. FUROSEMIDE [Concomitant]
  14. ISOSORBIDE DINITRATE [Concomitant]
  15. LORATADINE [Concomitant]
  16. MULTIVITAMIN [Concomitant]
  17. NEXIUM [Concomitant]
  18. OXYGEN [Concomitant]
     Dosage: 3 L, UNK
     Dates: start: 2004
  19. POLYETHYLENE GLYCOL [Concomitant]
  20. PROVIGIL [Concomitant]
  21. SIMVASTATIN [Concomitant]
  22. SINGULAIR [Concomitant]
  23. OXYCODONE HCL [Concomitant]
     Dosage: 10 MG, EVERY 4 HRS
  24. NOVOLOG [Concomitant]
  25. LANTUS [Concomitant]
  26. STOOL SOFTENER [Concomitant]

REACTIONS (22)
  - Upper limb fracture [Recovering/Resolving]
  - Hospitalisation [Unknown]
  - Fall [Recovering/Resolving]
  - Upper limb fracture [Unknown]
  - Upper limb fracture [Unknown]
  - Musculoskeletal disorder [Not Recovered/Not Resolved]
  - Bone disorder [Unknown]
  - Urinary tract infection [Unknown]
  - Dehydration [Unknown]
  - Amnesia [Unknown]
  - Musculoskeletal disorder [Unknown]
  - Muscular weakness [Unknown]
  - Musculoskeletal disorder [Unknown]
  - Blood magnesium decreased [Unknown]
  - Ill-defined disorder [Not Recovered/Not Resolved]
  - Malaise [Not Recovered/Not Resolved]
  - Body temperature increased [Not Recovered/Not Resolved]
  - Blood pressure increased [Not Recovered/Not Resolved]
  - Headache [Not Recovered/Not Resolved]
  - Arthralgia [Unknown]
  - Vomiting [Unknown]
  - Memory impairment [Unknown]
